FAERS Safety Report 8472399-0 (Version None)
Quarter: 2012Q2

REPORT INFORMATION
  Report Type: 
  Country: None (occurrence: None)
  Receive Date: 20120627
  Receipt Date: 20110720
  Transmission Date: 20120825
  Serious: No
  Sender: FDA-Public Use
  Company Number: US-AMGEN-USASP2011037590

PATIENT
  Age: 64 Year
  Sex: Female
  Weight: 52.154 kg

DRUGS (4)
  1. PEGASYS [Concomitant]
     Indication: HEPATITIS C
     Dosage: UNK
     Route: 058
     Dates: start: 20110101, end: 20110701
  2. PROCRIT [Suspect]
     Indication: HEPATITIS C
     Dosage: 40000 IU, QWK
     Route: 058
     Dates: start: 20110501, end: 20110701
  3. RIBAVIRIN [Concomitant]
     Indication: HEPATITIS C
     Dosage: UNK
     Dates: start: 20110101, end: 20110701
  4. NEUPOGEN [Concomitant]
     Indication: PRODUCT USED FOR UNKNOWN INDICATION
     Dosage: UNK
     Dates: start: 20110101, end: 20110701

REACTIONS (2)
  - DRUG INEFFECTIVE [None]
  - VIRAL TITRE INCREASED [None]
